FAERS Safety Report 5851670-2 (Version None)
Quarter: 2008Q3

REPORT INFORMATION
  Report Type: 
  Country: None (occurrence: None)
  Receive Date: 20080808
  Receipt Date: 20080501
  Transmission Date: 20090109
  Serious: No
  Sender: FDA-Public Use
  Company Number: WAES 0805USA00473

PATIENT
  Age: 65 Year
  Sex: Male

DRUGS (5)
  1. ZOLINZA [Suspect]
     Indication: MYCOSIS FUNGOIDES
     Dosage: 400 MG/DAILY/PO : 100 MG/DAILY/PO
     Route: 048
     Dates: start: 20071107
  2. ENABLEX [Concomitant]
  3. NEURONTIN [Concomitant]
  4. SYNTHROID [Concomitant]
  5. METHOTREXATE [Concomitant]

REACTIONS (4)
  - ALOPECIA [None]
  - ANOREXIA [None]
  - SKIN LESION [None]
  - WEIGHT DECREASED [None]
